FAERS Safety Report 5951537-5 (Version None)
Quarter: 2008Q4

REPORT INFORMATION
  Report Type: 
  Country: None (occurrence: None)
  Receive Date: 20081113
  Receipt Date: 20081106
  Transmission Date: 20090506
  Serious: Yes (Death)
  Sender: FDA-Public Use
  Company Number: IT-TYCO HEALTHCARE/MALLINCKRODT-T200801905

PATIENT

DRUGS (4)
  1. SODIUM IODIDE I 131 [Suspect]
     Indication: THYROID CANCER
     Dosage: 200 MCI, SINGLE
  2. SODIUM IODIDE I 131 [Suspect]
     Dosage: 200 MCI, SINGLE
  3. MIBG (I 131) THERAPEUTIC [Suspect]
     Indication: THYROID CANCER
     Dosage: 200 MCI, SINGLE
  4. MIBG (I 131) THERAPEUTIC [Suspect]
     Dosage: 600 MCI, SINGLE
     Dates: start: 19880101, end: 19880101

REACTIONS (1)
  - ACUTE MYELOID LEUKAEMIA [None]
